FAERS Safety Report 16269813 (Version 1)
Quarter: 2019Q2

REPORT INFORMATION
  Report Type: Spontaneous
  Country: US (occurrence: US)
  Receive Date: 20190502
  Receipt Date: 20190502
  Transmission Date: 20190711
  Serious: No
  Sender: FDA-Public Use
  Company Number: None

PATIENT
  Age: 29 Year
  Sex: Female
  Weight: 64.8 kg

DRUGS (2)
  1. CABERGOLINE. [Suspect]
     Active Substance: CABERGOLINE
     Indication: PITUITARY TUMOUR BENIGN
     Dosage: ?          QUANTITY:1 TABLET(S);OTHER FREQUENCY:PER WEEK;?
     Route: 048
     Dates: start: 20180901, end: 20190423
  2. MULTI VITAMIN [Concomitant]
     Active Substance: VITAMINS

REACTIONS (4)
  - Product substitution issue [None]
  - Flatulence [None]
  - Constipation [None]
  - Erythema [None]

NARRATIVE: CASE EVENT DATE: 20190425
